FAERS Safety Report 18244975 (Version 2)
Quarter: 2020Q3

REPORT INFORMATION
  Report Type: Spontaneous
  Country: US (occurrence: US)
  Receive Date: 20200908
  Receipt Date: 20200917
  Transmission Date: 20201103
  Serious: Yes (Other)
  Sender: FDA-Public Use
  Company Number: US-GW PHARMA-202009USGW02982

PATIENT

DRUGS (2)
  1. CHILDRENS MOTRIN [Concomitant]
     Active Substance: IBUPROFEN
     Indication: PRODUCT USED FOR UNKNOWN INDICATION
     Dosage: UNK
     Route: 065
  2. EPIDIOLEX [Suspect]
     Active Substance: CANNABIDIOL
     Indication: LENNOX-GASTAUT SYNDROME
     Dosage: 510 MILLIGRAM, Q12H
     Route: 048
     Dates: start: 201906

REACTIONS (4)
  - Seizure [Recovered/Resolved]
  - Fall [Recovered/Resolved]
  - Therapeutic product effect decreased [Unknown]
  - Burns third degree [Recovered/Resolved]

NARRATIVE: CASE EVENT DATE: 202004
